FAERS Safety Report 6762963-9 (Version None)
Quarter: 2010Q2

REPORT INFORMATION
  Report Type: 
  Country: None (occurrence: None)
  Receive Date: 20100608
  Receipt Date: 20100608
  Transmission Date: 20101027
  Serious: Yes (Hospitalization)
  Sender: FDA-Public Use
  Company Number: None

PATIENT
  Age: 75 Year
  Sex: Male

DRUGS (16)
  1. ABILIFY [Suspect]
     Indication: DEMENTIA
     Dosage: 20 MG PO DAILY
     Route: 048
     Dates: start: 20070901
  2. ABILIFY [Suspect]
     Indication: OSTEOARTHRITIS
     Dosage: 20 MG PO DAILY
     Route: 048
     Dates: start: 20070901
  3. ALBUTEROL/IPRATROP BR [Concomitant]
  4. CLOPIDROGEL [Concomitant]
  5. FUROSEMIDE [Concomitant]
  6. GABAPENTIN [Concomitant]
  7. INSULIN [Concomitant]
  8. ISOSORBIDE MONONITRATE [Concomitant]
  9. LISINOPRIL [Concomitant]
  10. LOPERAMIDE [Concomitant]
  11. NIACIN [Concomitant]
  12. METOPROLOL TARTRATE [Concomitant]
  13. OMEPRAZOLE [Concomitant]
  14. SERTRALINE HCL [Concomitant]
  15. SIMVASTATIN [Concomitant]
  16. EXENATIDE [Concomitant]

REACTIONS (2)
  - CHEST PAIN [None]
  - MIDDLE INSOMNIA [None]
